FAERS Safety Report 19067912 (Version 2)
Quarter: 2024Q4

REPORT INFORMATION
  Report Type: Report from Study
  Country: BR (occurrence: BR)
  Receive Date: 20210329
  Receipt Date: 20241001
  Transmission Date: 20250115
  Serious: Yes (Hospitalization, Other)
  Sender: TAKEDA
  Company Number: BR-TAKEDA-2021TUS018152

PATIENT
  Age: 65 Year
  Sex: Female

DRUGS (1)
  1. VEDOLIZUMAB [Suspect]
     Active Substance: VEDOLIZUMAB
     Indication: Crohn^s disease
     Dosage: 300 MILLIGRAM
     Route: 042
     Dates: start: 20200113

REACTIONS (4)
  - COVID-19 [Unknown]
  - Lung disorder [Unknown]
  - Intervertebral disc protrusion [Unknown]
  - Visual impairment [Unknown]

NARRATIVE: CASE EVENT DATE: 20210226
